FAERS Safety Report 21697294 (Version 1)
Quarter: 2022Q4

REPORT INFORMATION
  Report Type: Spontaneous
  Country: CN (occurrence: CN)
  Receive Date: 20221208
  Receipt Date: 20221208
  Transmission Date: 20230112
  Serious: No
  Sender: FDA-Public Use
  Company Number: CN-JNJFOC-20221201293

PATIENT
  Age: 21 Year
  Sex: Female
  Weight: 50 kg

DRUGS (3)
  1. INVOKANA [Suspect]
     Active Substance: CANAGLIFLOZIN
     Indication: Diabetes mellitus
     Route: 048
     Dates: start: 20221113, end: 20221115
  2. METFORMIN [Suspect]
     Active Substance: METFORMIN HYDROCHLORIDE
     Indication: Blood glucose fluctuation
     Dosage: 0.5 BID
     Route: 065
     Dates: start: 20221107
  3. PIOGLITAZONE [Suspect]
     Active Substance: PIOGLITAZONE
     Indication: Blood glucose fluctuation
     Route: 065
     Dates: start: 20221109

REACTIONS (1)
  - Blood ketone body [Recovering/Resolving]

NARRATIVE: CASE EVENT DATE: 20221115
